FAERS Safety Report 5079778-2 (Version None)
Quarter: 2006Q3

REPORT INFORMATION
  Report Type: 
  Country: None (occurrence: None)
  Receive Date: 20060808
  Receipt Date: 20060728
  Transmission Date: 20061208
  Serious: Yes (Hospitalization)
  Sender: FDA-Public Use
  Company Number: 228053

PATIENT
  Age: 56 Year
  Sex: Female

DRUGS (9)
  1. AVASTIN [Suspect]
     Indication: BREAST CANCER
     Dosage: 863 MG, Q3W
  2. DOCETAXEL (DOCETAXEL) [Suspect]
     Indication: BREAST CANCER
     Dosage: 125 MG, Q3W, INTRAVENOUS
     Route: 042
     Dates: start: 20060512, end: 20060531
  3. CYCLOPHOSPHAMIDE [Suspect]
     Indication: BREAST CANCER
     Dosage: 835 MG, Q3W, INTRAVENOUS
     Route: 042
     Dates: start: 20060512, end: 20060531
  4. EFFEXOR [Concomitant]
  5. DIOVAN [Concomitant]
  6. LEVOXYL [Concomitant]
  7. DARVON [Concomitant]
  8. ATIVAN [Concomitant]
  9. LACTULOSE [Concomitant]

REACTIONS (1)
  - FEBRILE NEUTROPENIA [None]
